FAERS Safety Report 10011636 (Version 1)
Quarter: 2014Q1

REPORT INFORMATION
  Report Type: Spontaneous
  Country: US (occurrence: None)
  Receive Date: 20140313
  Receipt Date: 20140313
  Transmission Date: 20141002
  Serious: Yes (Other)
  Sender: FDA-Public Use
  Company Number: None

PATIENT
  Age: 63 Year
  Sex: Female

DRUGS (1)
  1. ACTHAR H.P. [Suspect]
     Indication: SYSTEMIC LUPUS ERYTHEMATOSUS
     Dosage: 80UNITS/ML INJECTABLE SUBCUTANEOUS 057 TWICE WEEKLY
     Route: 058
     Dates: start: 20140304, end: 20140311

REACTIONS (3)
  - Headache [None]
  - Abdominal pain [None]
  - Wheezing [None]
